FAERS Safety Report 19061207 (Version 10)
Quarter: 2025Q4

REPORT INFORMATION
  Report Type: Spontaneous
  Country: JP (occurrence: JP)
  Receive Date: 20210326
  Receipt Date: 20251112
  Transmission Date: 20260118
  Serious: Yes (Death, Life-Threatening, Hospitalization, Other)
  Sender: BRISTOL-MYERS SQUIBB COMPANY
  Company Number: JP-BRISTOL-MYERS SQUIBB COMPANY-BMS-2021-027979

PATIENT
  Age: 72 Year
  Sex: Male

DRUGS (2)
  1. YERVOY [Suspect]
     Active Substance: IPILIMUMAB
     Indication: Metastatic renal cell carcinoma
     Route: 041
     Dates: start: 20210225, end: 20210225
  2. OPDIVO [Suspect]
     Active Substance: NIVOLUMAB
     Indication: Metastatic renal cell carcinoma
     Route: 041
     Dates: start: 20210225, end: 20210225

REACTIONS (3)
  - Malignant neoplasm progression [Fatal]
  - Cardiogenic shock [Not Recovered/Not Resolved]
  - Immune-mediated myocarditis [Fatal]

NARRATIVE: CASE EVENT DATE: 20210317
